FAERS Safety Report 9388734 (Version 1)
Quarter: 2013Q3

REPORT INFORMATION
  Report Type: Spontaneous
  Country: ES (occurrence: ES)
  Receive Date: 20130708
  Receipt Date: 20130708
  Transmission Date: 20140515
  Serious: Yes (Life-Threatening, Other)
  Sender: FDA-Public Use
  Company Number: ES-BRISTOL-MYERS SQUIBB COMPANY-19064013

PATIENT
  Age: 55 Year
  Sex: Male

DRUGS (3)
  1. ORENCIA FOR INJ 250 MG/VIAL [Suspect]
  2. METHOTREXATE [Suspect]
  3. CORTICOSTEROID [Suspect]

REACTIONS (2)
  - Malignant fibrous histiocytoma [Unknown]
  - Bladder cancer [Unknown]
